FAERS Safety Report 20785984 (Version 1)
Quarter: 2022Q2

REPORT INFORMATION
  Report Type: Spontaneous
  Country: US (occurrence: None)
  Receive Date: 20220504
  Receipt Date: 20220504
  Transmission Date: 20220721
  Serious: No
  Sender: FDA-Public Use
  Company Number: US-ROCHE-2992643

PATIENT
  Age: 47 Year
  Sex: Female
  Weight: 72.640 kg

DRUGS (6)
  1. OCREVUS [Suspect]
     Active Substance: OCRELIZUMAB
     Indication: Relapsing multiple sclerosis
     Dosage: 2 SPLIT DOSES
     Route: 042
     Dates: start: 202109
  2. PROPRANOLOL [Concomitant]
     Active Substance: PROPRANOLOL HYDROCHLORIDE
     Indication: Heart rate increased
     Route: 048
  3. MELATONIN [Concomitant]
     Active Substance: MELATONIN
     Indication: Initial insomnia
     Dosage: AT NIGHT
     Route: 048
  4. XANAX [Concomitant]
     Active Substance: ALPRAZOLAM
     Indication: Initial insomnia
     Dosage: AS NEEDED, HALF OF A 1 MG PILL
     Route: 048
  5. XANAX [Concomitant]
     Active Substance: ALPRAZOLAM
     Indication: Anxiety
  6. ZINC [Concomitant]
     Active Substance: ZINC
     Indication: COVID-19
     Dosage: IN THE MORNING
     Route: 048

REACTIONS (4)
  - Headache [Not Recovered/Not Resolved]
  - Nausea [Not Recovered/Not Resolved]
  - Vomiting [Not Recovered/Not Resolved]
  - Dyspepsia [Not Recovered/Not Resolved]

NARRATIVE: CASE EVENT DATE: 20211101
